FAERS Safety Report 5338772-4 (Version None)
Quarter: 2007Q2

REPORT INFORMATION
  Report Type: 
  Country: None (occurrence: None)
  Receive Date: 20070322
  Receipt Date: 20060417
  Transmission Date: 20071010
  Serious: Yes (Other)
  Sender: FDA-Public Use
  Company Number: 200610942BCC

PATIENT
  Age: 35 Year
  Sex: Female
  Weight: 83.4619 kg

DRUGS (4)
  1. ALEVE (CAPLET) [Suspect]
     Indication: PROCEDURAL PAIN
     Dosage: SEE IMAGE
     Route: 048
     Dates: start: 20060224, end: 20060301
  2. ALEVE (CAPLET) [Suspect]
     Indication: PROCEDURAL PAIN
     Dosage: SEE IMAGE
     Route: 048
     Dates: start: 20060222
  3. FOLIC ACID [Concomitant]
  4. FAHRENHEIT [Concomitant]

REACTIONS (1)
  - POST PROCEDURAL HAEMORRHAGE [None]
